FAERS Safety Report 21485756 (Version 8)
Quarter: 2023Q1

REPORT INFORMATION
  Report Type: Spontaneous
  Country: US (occurrence: US)
  Receive Date: 20221020
  Receipt Date: 20230202
  Transmission Date: 20230417
  Serious: Yes (Hospitalization)
  Sender: FDA-Public Use
  Company Number: US-ELI_LILLY_AND_COMPANY-US202210008402

PATIENT
  Sex: Female

DRUGS (11)
  1. ADCIRCA [Suspect]
     Active Substance: TADALAFIL
     Indication: Pulmonary arterial hypertension
     Dosage: 40 MG, DAILY
     Route: 048
     Dates: start: 202009
  2. ADCIRCA [Suspect]
     Active Substance: TADALAFIL
     Dosage: 40 MG, DAILY
     Route: 048
     Dates: start: 20210314
  3. REMODULIN [Suspect]
     Active Substance: TREPROSTINIL
     Indication: Pulmonary arterial hypertension
     Dosage: 22NG/KG/MIN, DAILY
     Route: 058
     Dates: start: 202209
  4. REMODULIN [Suspect]
     Active Substance: TREPROSTINIL
     Dosage: 22NG/KG/MIN, DAILY
     Route: 058
     Dates: start: 202210
  5. REMODULIN [Suspect]
     Active Substance: TREPROSTINIL
     Dosage: 1000 UG, BID
     Route: 058
  6. REMODULIN [Suspect]
     Active Substance: TREPROSTINIL
     Dosage: 29NG/KG/MIN, CONTINUOUS
     Route: 058
  7. UPTRAVI [Suspect]
     Active Substance: SELEXIPAG
     Indication: Pulmonary arterial hypertension
     Dosage: 1600 UG,  (1 IN 0.5 DAYS)
     Route: 048
     Dates: start: 201807
  8. UPTRAVI [Suspect]
     Active Substance: SELEXIPAG
     Dosage: 1000 UG, (1 IN 0.5 DAYS)
     Route: 048
  9. UPTRAVI [Suspect]
     Active Substance: SELEXIPAG
     Dosage: 200 UG,  (1 IN 0.5 DAYS)
     Route: 048
     Dates: start: 202210
  10. UPTRAVI [Suspect]
     Active Substance: SELEXIPAG
     Dosage: 800 UG, (1 IN 0.5 DAYS)
     Route: 048
     Dates: start: 202210
  11. TYVASO [Concomitant]
     Active Substance: TREPROSTINIL
     Indication: Product used for unknown indication

REACTIONS (12)
  - Joint swelling [Unknown]
  - Fatigue [Unknown]
  - Dyspnoea [Unknown]
  - Heart rate abnormal [Unknown]
  - Increased appetite [Unknown]
  - Injection site reaction [Unknown]
  - Therapy change [Unknown]
  - Fluid retention [Unknown]
  - Dysphagia [Unknown]
  - Cough [Unknown]
  - Palpitations [Unknown]
  - Headache [Unknown]
